FAERS Safety Report 6402660-2 (Version None)
Quarter: 2009Q4

REPORT INFORMATION
  Report Type: 
  Country: None (occurrence: None)
  Receive Date: 20091015
  Receipt Date: 20091006
  Transmission Date: 20100525
  Serious: Yes (Hospitalization)
  Sender: FDA-Public Use
  Company Number: GB-AMGEN-QUU358750

PATIENT
  Sex: Female
  Weight: 53.7 kg

DRUGS (4)
  1. NEULASTA [Suspect]
     Indication: CHEMOTHERAPY
     Route: 058
     Dates: start: 20090730
  2. FLUOROURACIL [Concomitant]
     Route: 042
     Dates: start: 20090729
  3. EPIRUBICIN [Concomitant]
     Route: 042
     Dates: start: 20090729
  4. CYCLOPHOSPHAMIDE [Concomitant]
     Route: 042
     Dates: start: 20090729

REACTIONS (4)
  - DRUG INEFFECTIVE [None]
  - NEUTROPENIA [None]
  - SEPSIS [None]
  - WHITE BLOOD CELL COUNT DECREASED [None]
